FAERS Safety Report 23194317 (Version 1)
Quarter: 2023Q4

REPORT INFORMATION
  Report Type: Spontaneous
  Country: US (occurrence: US)
  Receive Date: 20231117
  Receipt Date: 20231117
  Transmission Date: 20240110
  Serious: No
  Sender: FDA-Public Use
  Company Number: US-PADAGIS-2023PAD01621

PATIENT

DRUGS (1)
  1. IMIQUIMOD [Suspect]
     Active Substance: IMIQUIMOD
     Indication: Basal cell carcinoma
     Dosage: UNK QD ONCE A DAY NIGHTLY (5 TIMES A WEEK FOR THE LAST 6 WEEKS)
     Route: 065
     Dates: start: 202309, end: 202311

REACTIONS (4)
  - Application site erythema [Unknown]
  - Application site pain [Unknown]
  - Application site pain [Unknown]
  - Application site swelling [Unknown]

NARRATIVE: CASE EVENT DATE: 20231001
